FAERS Safety Report 6668022-8 (Version None)
Quarter: 2010Q2

REPORT INFORMATION
  Report Type: 
  Country: None (occurrence: None)
  Receive Date: 20100405
  Receipt Date: 20100323
  Transmission Date: 20101027
  Serious: Yes (Hospitalization, Other)
  Sender: FDA-Public Use
  Company Number: US-ABBOTT-10P-163-0634166-00

PATIENT
  Sex: Female

DRUGS (3)
  1. HUMIRA [Suspect]
     Indication: CROHN'S DISEASE
     Dates: start: 20100305
  2. METHADONE HCL [Concomitant]
     Indication: PAIN MANAGEMENT
     Dates: start: 20090101
  3. OXYCODONE [Concomitant]
     Indication: BREAKTHROUGH PAIN
     Dosage: 5-10MG DAILY- FOR BREAKTHROUGH PAIN
     Dates: start: 20090101

REACTIONS (5)
  - ARTHRALGIA [None]
  - ERYTHEMA [None]
  - FEMUR FRACTURE [None]
  - JOINT SWELLING [None]
  - PYREXIA [None]
